FAERS Safety Report 16237618 (Version 2)
Quarter: 2021Q4

REPORT INFORMATION
  Report Type: Spontaneous
  Country: CA (occurrence: CA)
  Receive Date: 20190425
  Receipt Date: 20211217
  Transmission Date: 20220303
  Serious: Yes (Life-Threatening, Hospitalization, Other)
  Sender: FDA-Public Use
  Company Number: CA-PFIZER INC-2019170982

PATIENT
  Age: 20 Year
  Sex: Female
  Weight: 50 kg

DRUGS (6)
  1. IBUPROFEN [Suspect]
     Active Substance: IBUPROFEN
     Indication: Product used for unknown indication
     Dosage: 32 G, SINGLE (ONCE)
     Route: 048
  2. ACETAMINOPHEN [Suspect]
     Active Substance: ACETAMINOPHEN
     Indication: Product used for unknown indication
     Dosage: 60 G, SINGLE (ONCE)
     Route: 048
  3. CHLORPHENIRAMINE MALEATE [Suspect]
     Active Substance: CHLORPHENIRAMINE MALEATE
     Indication: Product used for unknown indication
     Dosage: 144 MG, UNK
     Route: 048
  4. PSEUDOEPHEDRINE [Suspect]
     Active Substance: PSEUDOEPHEDRINE
     Indication: Product used for unknown indication
     Dosage: 2.2 G, SINGLE (ONCE)
     Route: 048
  5. OXYCODONE [Concomitant]
     Active Substance: OXYCODONE
     Indication: Product used for unknown indication
     Dosage: UNK
  6. CITALOPRAM [Concomitant]
     Active Substance: CITALOPRAM HYDROBROMIDE
     Indication: Product used for unknown indication
     Dosage: UNK
     Route: 065

REACTIONS (33)
  - Overdose [Recovered/Resolved]
  - Coma [Recovered/Resolved]
  - International normalised ratio increased [Recovered/Resolved]
  - Lactic acidosis [Recovered/Resolved]
  - Transaminases increased [Recovered/Resolved]
  - Vomiting [Recovered/Resolved]
  - Mitochondrial toxicity [Recovered/Resolved]
  - Alanine aminotransferase increased [Recovered/Resolved]
  - Aspartate aminotransferase increased [Recovered/Resolved]
  - Blood bicarbonate decreased [Recovered/Resolved]
  - Blood lactic acid increased [Recovered/Resolved]
  - Blood pH decreased [Recovered/Resolved]
  - Blood pressure increased [Recovered/Resolved]
  - Coma scale abnormal [Recovered/Resolved]
  - Heart rate increased [Recovered/Resolved]
  - Metabolic acidosis [Recovered/Resolved]
  - PCO2 decreased [Recovered/Resolved]
  - Unresponsive to stimuli [Recovered/Resolved]
  - Suicide attempt [Recovered/Resolved]
  - Abdominal tenderness [Unknown]
  - Depressed level of consciousness [Unknown]
  - Hypokalaemia [Unknown]
  - Hyponatraemia [Unknown]
  - Hypotension [Unknown]
  - Intentional overdose [Unknown]
  - Leukocytosis [Unknown]
  - Methaemoglobinaemia [Unknown]
  - Shock [Unknown]
  - Sinus tachycardia [Unknown]
  - Altered state of consciousness [Unknown]
  - Analgesic drug level increased [Unknown]
  - Tachycardia [Unknown]
  - Toxicity to various agents [Unknown]
